FAERS Safety Report 8942405 (Version 4)
Quarter: 2013Q1

REPORT INFORMATION
  Report Type: Spontaneous
  Country: US (occurrence: None)
  Receive Date: 20121121
  Receipt Date: 20130326
  Transmission Date: 20140127
  Serious: Yes (Life-Threatening, Other)
  Sender: FDA-Public Use
  Company Number: ACO_32986_2012

PATIENT
  Age: 47 Year
  Sex: Female
  Weight: 76.2 kg

DRUGS (13)
  1. AMPYRA [Suspect]
     Indication: GAIT DISTURBANCE
     Route: 048
     Dates: end: 201012
  2. LUNESTA (ESZOPICLONE) [Concomitant]
  3. REBIF (INTERFERON BETA-1A) [Concomitant]
  4. ULTRACET (PARACETAMOL, TRAMADOL HYDROCHLORIDE) [Concomitant]
  5. GLUCOSAMINE (GLUCOSAMINE) [Concomitant]
  6. BUTALBITAL/APAP (BUTALBITAL, PARACETAMOL) [Concomitant]
  7. INDOMETHACIN (INDOMETACIN) [Concomitant]
  8. EFFEXOR XR (VENLAFAXINE HYDROCHLORIDE) (75 MILLIGRAM, CAPSULE) (VENLAFAXINE HYDROCHLORIDE) [Concomitant]
  9. LISINOPRIL (LISINOPRIL) [Concomitant]
  10. CALCIUM + D (CALCIUM CARBONATE, COLECALFEROL) [Concomitant]
  11. IBUPROFEN (IBUPROFEN) [Concomitant]
  12. AMANTADINE HCL (AMANTADINE HYDROCHLORIDE) [Concomitant]
  13. DIAZEPAM (DIAZEPAM) [Concomitant]

REACTIONS (9)
  - Suicidal ideation [None]
  - Feeling abnormal [None]
  - Depression [None]
  - Anxiety [None]
  - Aspartate aminotransferase increased [None]
  - Alanine aminotransferase increased [None]
  - Rash papular [None]
  - Arthralgia [None]
  - Abdominal pain lower [None]
